FAERS Safety Report 12265092 (Version 1)
Quarter: 2016Q2

REPORT INFORMATION
  Report Type: Spontaneous
  Country: CA (occurrence: CA)
  Receive Date: 20160413
  Receipt Date: 20160413
  Transmission Date: 20160815
  Serious: Yes (Other)
  Sender: FDA-Public Use
  Company Number: CA-B. BRAUN MEDICAL INC.-1050521

PATIENT
  Age: 70 Year
  Sex: Male

DRUGS (7)
  1. SODIUM BICARBONATE. [Suspect]
     Active Substance: SODIUM BICARBONATE
     Route: 042
  2. DISODIUM EDTA [Suspect]
     Active Substance: EDETATE DISODIUM
     Route: 042
  3. VITAMIN C [Suspect]
     Active Substance: ASCORBIC ACID
     Route: 042
  4. VITAMIN B5 [Suspect]
     Active Substance: PANTOTHENIC ACID
     Route: 042
  5. VITAMIN B COMPLEX [Suspect]
     Active Substance: CYANOCOBALAMIN\DEXPANTHENOL\NIACINAMIDE\PYRIDOXINE HYDROCHLORIDE\RIBOFLAVIN 5^-PHOSPHATE SODIUM\THIAMINE HYDROCHLORIDE\VITAMIN B COMPLEX
     Route: 042
  6. STERILE WATER FOR INJECTION [Suspect]
     Active Substance: WATER
     Route: 042
  7. VITAMIN B6 [Suspect]
     Active Substance: PYRIDOXINE HYDROCHLORIDE
     Route: 042

REACTIONS (2)
  - Thrombophlebitis [None]
  - Rash [None]
